FAERS Safety Report 12305814 (Version 1)
Quarter: 2016Q2

REPORT INFORMATION
  Report Type: Other
  Country: US (occurrence: US)
  Receive Date: 20160426
  Receipt Date: 20160426
  Transmission Date: 20160815
  Serious: Yes (Other)
  Sender: FDA-Public Use
  Company Number: US-MDT-ADR-2016-00736

PATIENT
  Age: 35 Year
  Sex: Female

DRUGS (6)
  1. GABAPENTIN. [Suspect]
     Active Substance: GABAPENTIN
  2. NITROFURANTOIN. [Suspect]
     Active Substance: NITROFURANTOIN
  3. BACLOFEN. [Suspect]
     Active Substance: BACLOFEN
     Dosage: 160 MG/DAY
     Route: 048
  4. TRAZODONE [Suspect]
     Active Substance: TRAZODONE HYDROCHLORIDE
  5. TIZANIDINE. [Suspect]
     Active Substance: TIZANIDINE
  6. LOW MOLECULAR WEIGHT HEPARIN [Suspect]
     Active Substance: UNSPECIFIED INGREDIENT

REACTIONS (4)
  - Pregnancy with advanced maternal age [Unknown]
  - Maternal exposure during pregnancy [Unknown]
  - Depression [Unknown]
  - Anxiety [Unknown]
